FAERS Safety Report 4888092-7 (Version None)
Quarter: 2006Q1

REPORT INFORMATION
  Report Type: 
  Country: None (occurrence: None)
  Receive Date: 20060123
  Receipt Date: 20051004
  Transmission Date: 20060701
  Serious: Yes (Hospitalization, Disabling, Other)
  Sender: FDA-Public Use
  Company Number: US-MERCK-0510USA03681

PATIENT
  Age: 70 Year
  Sex: Female
  Weight: 70 kg

DRUGS (12)
  1. VIOXX [Suspect]
     Indication: ARTHRITIS
     Route: 048
     Dates: start: 19990101, end: 20000514
  2. PREMARIN [Concomitant]
     Route: 065
  3. LEVOXYL [Concomitant]
     Route: 065
  4. TAMBOCOR [Concomitant]
     Route: 065
  5. FLEXERIL [Concomitant]
     Route: 065
  6. CLONIDINE [Concomitant]
     Route: 065
  7. TRIAMTERENE [Concomitant]
     Route: 065
  8. LOTENSIN [Concomitant]
     Route: 065
  9. DYAZIDE [Concomitant]
     Route: 065
  10. CLARITIN [Concomitant]
     Route: 065
  11. PAMELOR [Concomitant]
     Route: 065
  12. VANCERIL [Concomitant]
     Route: 065

REACTIONS (4)
  - CARDIAC DISORDER [None]
  - MYOCARDIAL INFARCTION [None]
  - RENAL FAILURE [None]
  - VENTRICULAR TACHYCARDIA [None]
